FAERS Safety Report 9612993 (Version 2)
Quarter: 2013Q4

REPORT INFORMATION
  Report Type: Spontaneous
  Country: US (occurrence: US)
  Receive Date: 20131010
  Receipt Date: 20131017
  Transmission Date: 20140711
  Serious: Yes (Other)
  Sender: FDA-Public Use
  Company Number: US-TEVA-437276USA

PATIENT
  Sex: Male
  Weight: 13.62 kg

DRUGS (2)
  1. QVAR [Suspect]
  2. MULTIVITAMIN [Concomitant]

REACTIONS (2)
  - Burns second degree [Unknown]
  - Accidental exposure to product [Unknown]
